FAERS Safety Report 13828491 (Version 1)
Quarter: 2017Q3

REPORT INFORMATION
  Report Type: Spontaneous
  Country: US (occurrence: US)
  Receive Date: 20170803
  Receipt Date: 20170803
  Transmission Date: 20171127
  Serious: Yes (Other)
  Sender: FDA-Public Use
  Company Number: US-BRISTOL-MYERS SQUIBB COMPANY-BMS-2017-067815

PATIENT
  Sex: Male
  Weight: 104.7 kg

DRUGS (1)
  1. ELIQUIS [Suspect]
     Active Substance: APIXABAN
     Indication: DEEP VEIN THROMBOSIS
     Dosage: 5 MG, BID
     Route: 048
     Dates: start: 201601

REACTIONS (6)
  - Vision blurred [Unknown]
  - Muscle rupture [Unknown]
  - Gait inability [Unknown]
  - Weight increased [Unknown]
  - Deep vein thrombosis [Unknown]
  - Increased appetite [Unknown]
